FAERS Safety Report 25205460 (Version 2)
Quarter: 2025Q2

REPORT INFORMATION
  Report Type: Spontaneous
  Country: US (occurrence: US)
  Receive Date: 20250417
  Receipt Date: 20250417
  Transmission Date: 20250717
  Serious: Yes (Other)
  Sender: BAUSCH AND LOMB
  Company Number: US-BAUSCHBL-2025BNL005900

PATIENT
  Sex: Female

DRUGS (4)
  1. DEXAMETHASONE\NEOMYCIN\POLYMYXIN B SULFATE [Suspect]
     Active Substance: DEXAMETHASONE\NEOMYCIN\POLYMYXIN B SULFATE
     Indication: Inflammation
     Dosage: OINTMENT TO BE USED 1/4 INCH TO 1/2 INCH IN HER EYE
     Route: 047
     Dates: start: 20250122, end: 20250218
  2. DEXAMETHASONE\NEOMYCIN\POLYMYXIN B SULFATE [Suspect]
     Active Substance: DEXAMETHASONE\NEOMYCIN\POLYMYXIN B SULFATE
     Dosage: OINTMENT TO BE USED 1/4 INCH TO 1/2 INCH IN HER EYE
     Route: 047
     Dates: start: 20250218, end: 20250329
  3. GLYCERIN EYE DROPS [Concomitant]
     Indication: Postoperative care
     Route: 065
     Dates: start: 20250115, end: 20250122
  4. VALACYCLOVIR [Concomitant]
     Active Substance: VALACYCLOVIR HYDROCHLORIDE
     Indication: Herpes simplex
     Route: 048
     Dates: start: 20250115, end: 20250122

REACTIONS (4)
  - Ophthalmic herpes simplex [Not Recovered/Not Resolved]
  - Condition aggravated [Not Recovered/Not Resolved]
  - Ocular discomfort [Not Recovered/Not Resolved]
  - Headache [Not Recovered/Not Resolved]

NARRATIVE: CASE EVENT DATE: 20250218
